FAERS Safety Report 16713554 (Version 7)
Quarter: 2021Q3

REPORT INFORMATION
  Report Type: Spontaneous
  Country: US (occurrence: US)
  Receive Date: 20190819
  Receipt Date: 20210913
  Transmission Date: 20211014
  Serious: No
  Sender: FDA-Public Use
  Company Number: US-BIOGEN-2019BI00756760

PATIENT
  Age: 63 Year
  Sex: Female
  Weight: 52.21 kg

DRUGS (8)
  1. TECFIDERA [Suspect]
     Active Substance: DIMETHYL FUMARATE
     Indication: MULTIPLE SCLEROSIS
     Route: 048
     Dates: start: 20190624, end: 20190702
  2. OSTEO BI?FLEX [Concomitant]
     Active Substance: CHONDROITIN SULFATE A\GLUCOSAMINE
     Route: 065
  3. TECFIDERA [Suspect]
     Active Substance: DIMETHYL FUMARATE
     Route: 048
     Dates: start: 20190703, end: 20190710
  4. VITAMIN B COMPLEX [Concomitant]
     Active Substance: CYANOCOBALAMIN\DEXPANTHENOL\NIACINAMIDE\PYRIDOXINE HYDROCHLORIDE\RIBOFLAVIN 5^-PHOSPHATE SODIUM\THIAMINE HYDROCHLORIDE\VITAMIN B COMPLEX
     Route: 065
  5. NEURO PS [Concomitant]
     Route: 065
  6. TECFIDERA [Suspect]
     Active Substance: DIMETHYL FUMARATE
     Route: 048
     Dates: start: 20190915
  7. TECFIDERA [Suspect]
     Active Substance: DIMETHYL FUMARATE
     Route: 048
     Dates: start: 201908
  8. TECFIDERA [Suspect]
     Active Substance: DIMETHYL FUMARATE
     Route: 048
     Dates: start: 20190805

REACTIONS (32)
  - Musculoskeletal disorder [Not Recovered/Not Resolved]
  - Poor quality sleep [Unknown]
  - Anger [Unknown]
  - Palpitations [Unknown]
  - Influenza [Unknown]
  - Oropharyngeal pain [Not Recovered/Not Resolved]
  - Heart rate increased [Unknown]
  - Sneezing [Not Recovered/Not Resolved]
  - Dehydration [Not Recovered/Not Resolved]
  - Lymphadenopathy [Not Recovered/Not Resolved]
  - Feeling abnormal [Unknown]
  - Eating disorder [Unknown]
  - Rhinorrhoea [Not Recovered/Not Resolved]
  - Weight decreased [Unknown]
  - Fall [Recovered/Resolved]
  - Abdominal pain upper [Unknown]
  - Fatigue [Not Recovered/Not Resolved]
  - Multiple sclerosis [Not Recovered/Not Resolved]
  - Chromaturia [Recovered/Resolved]
  - Arthritis [Not Recovered/Not Resolved]
  - Hot flush [Unknown]
  - Vomiting [Recovered/Resolved]
  - Illness [Not Recovered/Not Resolved]
  - Gait disturbance [Unknown]
  - Neuralgia [Unknown]
  - Malaise [Unknown]
  - Drug intolerance [Unknown]
  - Decreased appetite [Unknown]
  - Insomnia [Unknown]
  - Gastric disorder [Recovered/Resolved]
  - Diarrhoea [Unknown]
  - Flushing [Recovered/Resolved]

NARRATIVE: CASE EVENT DATE: 2019
